FAERS Safety Report 25877084 (Version 1)
Quarter: 2025Q4

REPORT INFORMATION
  Report Type: Spontaneous
  Country: US (occurrence: None)
  Receive Date: 20251002
  Receipt Date: 20251002
  Transmission Date: 20260118
  Serious: Yes (Hospitalization)
  Sender: FDA-CTU
  Company Number: None

PATIENT
  Age: 75 Year
  Sex: Male

DRUGS (11)
  1. EVEROLIMUS [Suspect]
     Active Substance: EVEROLIMUS
     Indication: Heart transplant
     Dosage: 2 MG BID ORAL
     Route: 048
     Dates: start: 20250908
  2. ALLOPURINOL [Concomitant]
     Active Substance: ALLOPURINOL
  3. Antacid Liquid [Concomitant]
  4. LIDOCAINE [Concomitant]
     Active Substance: LIDOCAINE
  5. FLUCONAZOLE [Concomitant]
     Active Substance: FLUCONAZOLE
  6. lsosorbide [Concomitant]
  7. HYDRALAZINE [Concomitant]
     Active Substance: HYDRALAZINE HYDROCHLORIDE
  8. CETIRIZINE [Concomitant]
     Active Substance: CETIRIZINE HYDROCHLORIDE
  9. FLUTICASONE [Concomitant]
     Active Substance: FLUTICASONE
  10. ALBUTEROL [Concomitant]
     Active Substance: ALBUTEROL
  11. DULOXETINE [Concomitant]
     Active Substance: DULOXETINE

REACTIONS (1)
  - Pneumonia [None]
